FAERS Safety Report 23967952 (Version 5)
Quarter: 2025Q1

REPORT INFORMATION
  Report Type: Report from Study
  Country: AR (occurrence: AR)
  Receive Date: 20240612
  Receipt Date: 20250103
  Transmission Date: 20250408
  Serious: Yes (Hospitalization, Other)
  Sender: GLAXOSMITHKLINE
  Company Number: AR-GLAXOSMITHKLINE-AR2024AMR071026

PATIENT

DRUGS (1)
  1. BELIMUMAB [Suspect]
     Active Substance: BELIMUMAB
     Indication: Systemic lupus erythematosus
     Dosage: 200 MG, WE
     Dates: start: 20190815

REACTIONS (11)
  - Pulmonary oedema [Unknown]
  - Systemic lupus erythematosus [Unknown]
  - Pericardial effusion [Unknown]
  - Illness [Not Recovered/Not Resolved]
  - Decreased immune responsiveness [Unknown]
  - Cough [Unknown]
  - Alopecia [Unknown]
  - Renal disorder [Unknown]
  - Bronchitis [Not Recovered/Not Resolved]
  - General physical health deterioration [Not Recovered/Not Resolved]
  - Incorrect dose administered [Unknown]

NARRATIVE: CASE EVENT DATE: 20190801
